FAERS Safety Report 7224899-9 (Version None)
Quarter: 2011Q1

REPORT INFORMATION
  Report Type: 
  Country: None (occurrence: None)
  Receive Date: 20110113
  Receipt Date: 20110107
  Transmission Date: 20110831
  Serious: Yes (Hospitalization)
  Sender: FDA-Public Use
  Company Number: CN-ROCHE-751946

PATIENT
  Age: 75 Year
  Sex: Male

DRUGS (1)
  1. XELODA [Suspect]
     Route: 048

REACTIONS (4)
  - BOWEL MOVEMENT IRREGULARITY [None]
  - INTESTINAL OBSTRUCTION [None]
  - DIARRHOEA [None]
  - ABDOMINAL ADHESIONS [None]
